FAERS Safety Report 10607355 (Version 2)
Quarter: 2015Q2

REPORT INFORMATION
  Report Type: Spontaneous
  Country: SE (occurrence: SE)
  Receive Date: 20141125
  Receipt Date: 20150417
  Transmission Date: 20150821
  Serious: Yes (Hospitalization)
  Sender: FDA-Public Use
  Company Number: SE-009507513-1411SWE011004

PATIENT
  Age: 47 Year
  Sex: Female

DRUGS (6)
  1. DUROFERON [Suspect]
     Active Substance: FERROUS SULFATE\FERROUS SULFATE, DRIED
  2. SELOKEN [Suspect]
     Active Substance: METOPROLOL
  3. SIMVASTATIN. [Suspect]
     Active Substance: SIMVASTATIN
     Route: 048
  4. LEVAXIN [Suspect]
     Active Substance: LEVOTHYROXINE SODIUM
  5. LAMOTRIGINE. [Suspect]
     Active Substance: LAMOTRIGINE
  6. TOPIMAX (TOPIRAMATE) [Suspect]
     Active Substance: TOPIRAMATE

REACTIONS (3)
  - Hypotonia [Unknown]
  - Toxicity to various agents [Unknown]
  - Depressed level of consciousness [Unknown]
